FAERS Safety Report 18663879 (Version 1)
Quarter: 2020Q4

REPORT INFORMATION
  Report Type: Spontaneous
  Country: FR (occurrence: FR)
  Receive Date: 20201224
  Receipt Date: 20201224
  Transmission Date: 20210114
  Serious: Yes (Other)
  Sender: FDA-Public Use
  Company Number: FR-LUPIN PHARMACEUTICALS INC.-2020-11125

PATIENT
  Sex: Female
  Weight: 1440 kg

DRUGS (2)
  1. CEFTRIAXONE. [Suspect]
     Active Substance: CEFTRIAXONE
     Indication: PRODUCT USED FOR UNKNOWN INDICATION
     Dosage: 2 GRAM, UNK
     Route: 064
     Dates: start: 201910, end: 201910
  2. ARTESUNATE [Suspect]
     Active Substance: ARTESUNATE
     Indication: PRODUCT USED FOR UNKNOWN INDICATION
     Dosage: 2.4 MILLIGRAM/KILOGRAM, UNK
     Route: 064
     Dates: start: 201910, end: 201910

REACTIONS (4)
  - Premature baby [Unknown]
  - Apgar score low [Unknown]
  - Foetal exposure during pregnancy [Unknown]
  - Low birth weight baby [Recovering/Resolving]

NARRATIVE: CASE EVENT DATE: 201910
